FAERS Safety Report 6105200-0 (Version None)
Quarter: 2009Q1

REPORT INFORMATION
  Report Type: 
  Country: None (occurrence: None)
  Receive Date: 20090304
  Receipt Date: 20090304
  Transmission Date: 20090719
  Serious: Yes (Hospitalization)
  Sender: FDA-Public Use
  Company Number: None

PATIENT
  Sex: Female
  Weight: 94 kg

DRUGS (6)
  1. CYCLOPHOSPHAMIDE [Suspect]
     Dosage: 1755 MG
  2. DOXORUBICIN HCL [Suspect]
     Dosage: 93.6 MG
  3. ETOPOSIDE [Suspect]
     Dosage: 468 MG
  4. PREDNISONE [Suspect]
     Dosage: 1080 MG
  5. RITUXIMAB (MOAB C2B8 ANTI CD20, CHIMERIC) [Suspect]
     Dosage: 730 MG
  6. VINCRISTINE SULFATE [Suspect]
     Dosage: 3.2 MG

REACTIONS (4)
  - CLOSTRIDIAL INFECTION [None]
  - DIARRHOEA [None]
  - ENTEROBACTER INFECTION [None]
  - URINARY TRACT INFECTION [None]
